FAERS Safety Report 8288256-9 (Version None)
Quarter: 2012Q2

REPORT INFORMATION
  Report Type: 
  Country: None (occurrence: None)
  Receive Date: 20120416
  Receipt Date: 20120404
  Transmission Date: 20120825
  Serious: Yes (Other)
  Sender: FDA-Public Use
  Company Number: CA-ELI_LILLY_AND_COMPANY-CA201204001421

PATIENT
  Age: 67 Year
  Sex: Female

DRUGS (5)
  1. AMITRIPTYLINE HCL [Concomitant]
  2. LASIX [Concomitant]
     Indication: OEDEMA
     Dosage: UNK, QD
  3. FORTEO [Suspect]
     Indication: OSTEOPOROSIS
     Dosage: 20 UG, QD
     Route: 058
     Dates: start: 20110125, end: 20120329
  4. VITAMIN D [Concomitant]
     Dosage: 50000 IU, MONTHLY (1/M)
  5. TYLENOL (CAPLET) [Concomitant]
     Dosage: UNK, PRN

REACTIONS (11)
  - PALPITATIONS [None]
  - GAIT DISTURBANCE [None]
  - HYPOTENSION [None]
  - LIMB DISCOMFORT [None]
  - CARDIAC FAILURE CONGESTIVE [None]
  - INTENTIONAL DRUG MISUSE [None]
  - HEART VALVE INCOMPETENCE [None]
  - OEDEMA PERIPHERAL [None]
  - HEART RATE DECREASED [None]
  - PAIN IN EXTREMITY [None]
  - PAIN OF SKIN [None]
